FAERS Safety Report 15708491 (Version 1)
Quarter: 2018Q4

REPORT INFORMATION
  Report Type: Spontaneous
  Country: US (occurrence: US)
  Receive Date: 20181211
  Receipt Date: 20181211
  Transmission Date: 20190205
  Serious: Yes (Other)
  Sender: FDA-Public Use
  Company Number: US-JNJFOC-20181202545

PATIENT
  Age: 49 Year
  Sex: Female

DRUGS (2)
  1. JOHNSONS BABY POWDER (TALC) [Suspect]
     Active Substance: TALC
     Indication: PRODUCT USED FOR UNKNOWN INDICATION
     Dosage: TO DUST HER PERINEUM FOR FEMININE HYGIENE PURPOSES.
     Route: 061
     Dates: start: 1980, end: 201401
  2. SHOWER TO SHOWER POWDER [Suspect]
     Active Substance: TALC
     Indication: PRODUCT USED FOR UNKNOWN INDICATION
     Dosage: TO DUST HER PERINEUM FOR FEMININE HYGIENE PURPOSES
     Route: 061
     Dates: start: 1980, end: 201401

REACTIONS (2)
  - Renal cell carcinoma stage I [Unknown]
  - Ovarian cancer stage III [Unknown]

NARRATIVE: CASE EVENT DATE: 20131001
